FAERS Safety Report 10429658 (Version 1)
Quarter: 2014Q3

REPORT INFORMATION
  Report Type: Spontaneous
  Country: US (occurrence: None)
  Receive Date: 20140902
  Receipt Date: 20140902
  Transmission Date: 20150326
  Serious: No
  Sender: FDA-Public Use
  Company Number: None

PATIENT
  Age: 42 Year
  Sex: Female

DRUGS (1)
  1. MIRVASO [Suspect]
     Active Substance: BRIMONIDINE TARTRATE
     Dosage: APPLY CREAM TO FACE DAILY ONCE DAILY APPLIED TOA  SURFACE, USUALLY THE SKIN
     Dates: start: 20140901

REACTIONS (3)
  - Flushing [None]
  - Rosacea [None]
  - Condition aggravated [None]

NARRATIVE: CASE EVENT DATE: 20140901
